FAERS Safety Report 16701978 (Version 1)
Quarter: 2019Q3

REPORT INFORMATION
  Report Type: Spontaneous
  Country: US (occurrence: US)
  Receive Date: 20190722
  Receipt Date: 20190722
  Transmission Date: 20191004
  Serious: Yes (Disabling, Other)
  Sender: FDA-Public Use
  Company Number: None

PATIENT
  Age: 53 Year
  Sex: Female
  Weight: 51.75 kg

DRUGS (3)
  1. COLGATE OPTIC WHITE SEAL MOUTHWASH [Suspect]
     Active Substance: HYDROGEN PEROXIDE
     Indication: DENTAL COSMETIC PROCEDURE
     Route: 048
  2. VITAMIN D3 [Concomitant]
     Active Substance: CHOLECALCIFEROL
  3. VITAMIN C [Concomitant]
     Active Substance: ASCORBIC ACID

REACTIONS (1)
  - Gingival recession [None]

NARRATIVE: CASE EVENT DATE: 20171120
